FAERS Safety Report 11587666 (Version 2)
Quarter: 2015Q4

REPORT INFORMATION
  Report Type: Spontaneous
  Country: US (occurrence: US)
  Receive Date: 20151001
  Receipt Date: 20151026
  Transmission Date: 20160304
  Serious: Yes (Hospitalization, Other)
  Sender: FDA-Public Use
  Company Number: US-009507513-1509USA013297

PATIENT
  Age: 35 Year
  Sex: Female
  Weight: 76 kg

DRUGS (1)
  1. KEYTRUDA [Suspect]
     Active Substance: PEMBROLIZUMAB
     Indication: COLON CANCER STAGE IV
     Dosage: 800 MG EVERY 14 DAYS
     Route: 042

REACTIONS (3)
  - Product use issue [Unknown]
  - Maternal exposure during pregnancy [Not Recovered/Not Resolved]
  - Inappropriate schedule of drug administration [Unknown]
